FAERS Safety Report 24948296 (Version 2)
Quarter: 2025Q4

REPORT INFORMATION
  Report Type: Spontaneous
  Country: US (occurrence: US)
  Receive Date: 20250210
  Receipt Date: 20251224
  Transmission Date: 20260117
  Serious: Yes (Other)
  Sender: COOPERSURGICAL
  Company Number: US-COOPERSURGICAL, INC.-2025CPS000679

PATIENT
  Age: 22 Year
  Sex: Female
  Weight: 113.38 kg

DRUGS (1)
  1. PARAGARD T 380A [Suspect]
     Active Substance: COPPER
     Indication: Contraception
     Dosage: UNK
     Route: 015
     Dates: start: 20090601, end: 20160728

REACTIONS (13)
  - Device breakage [Recovered/Resolved]
  - Foreign body in reproductive tract [Recovered/Resolved]
  - Complication of device removal [Recovered/Resolved]
  - Embedded device [Recovered/Resolved]
  - Uterine scar [Not Recovered/Not Resolved]
  - Post-traumatic stress disorder [Unknown]
  - Anxiety [Not Recovered/Not Resolved]
  - Abdominal pain [Unknown]
  - Dyspareunia [Not Recovered/Not Resolved]
  - Pelvic pain [Recovered/Resolved]
  - Pain [Not Recovered/Not Resolved]
  - Discomfort [Not Recovered/Not Resolved]
  - Muscle spasms [Unknown]

NARRATIVE: CASE EVENT DATE: 20110601
